FAERS Safety Report 21228224 (Version 1)
Quarter: 2022Q3

REPORT INFORMATION
  Report Type: Report from Study
  Country: BR (occurrence: BR)
  Receive Date: 20220818
  Receipt Date: 20220818
  Transmission Date: 20221027
  Serious: Yes (Other)
  Sender: FDA-Public Use
  Company Number: BR-JNJFOC-20220352384

PATIENT
  Age: 49 Year
  Sex: Female

DRUGS (11)
  1. SIMPONI [Suspect]
     Active Substance: GOLIMUMAB
     Indication: Rheumatoid arthritis
     Route: 058
     Dates: start: 20171226
  2. SIMPONI [Suspect]
     Active Substance: GOLIMUMAB
     Route: 058
     Dates: start: 20220318
  3. METHOTREXATE [Concomitant]
     Active Substance: METHOTREXATE
  4. RIVOTRIL [Concomitant]
     Active Substance: CLONAZEPAM
     Dosage: 3 TABLETS
  5. LOSARTAN [Concomitant]
     Active Substance: LOSARTAN
     Dosage: 50 MG
  6. ATENOLOL [Concomitant]
     Active Substance: ATENOLOL
     Dosage: 25 MG
  7. HYDROXYCHLOROQUINE SULFATE [Concomitant]
     Active Substance: HYDROXYCHLOROQUINE SULFATE
  8. AZULFIDINE [Concomitant]
     Active Substance: SULFASALAZINE
  9. PREDNISOLONE [Concomitant]
     Active Substance: PREDNISOLONE
  10. FOLIC ACID [Concomitant]
     Active Substance: FOLIC ACID
  11. PREDNISOLONE [Concomitant]
     Active Substance: PREDNISOLONE

REACTIONS (4)
  - Rheumatoid arthritis [Unknown]
  - Product dose omission issue [Unknown]
  - Herpes simplex [Unknown]
  - Alopecia [Unknown]

NARRATIVE: CASE EVENT DATE: 20180101
